FAERS Safety Report 5266096-2 (Version None)
Quarter: 2007Q1

REPORT INFORMATION
  Report Type: 
  Country: None (occurrence: None)
  Receive Date: 20070315
  Receipt Date: 20070313
  Transmission Date: 20070707
  Serious: Yes (Hospitalization)
  Sender: FDA-Public Use
  Company Number: US-BRISTOL-MYERS SQUIBB COMPANY-13509419

PATIENT
  Age: 71 Year
  Sex: Female

DRUGS (6)
  1. CETUXIMAB [Suspect]
     Indication: LUNG CANCER METASTATIC
     Route: 042
     Dates: start: 20060824, end: 20060824
  2. TAXOL [Suspect]
     Indication: LUNG CANCER METASTATIC
     Route: 042
     Dates: start: 20060817, end: 20060817
  3. CARBOPLATIN [Suspect]
     Indication: LUNG CANCER METASTATIC
     Route: 042
     Dates: start: 20060817, end: 20060817
  4. SLO-MAG [Concomitant]
     Dates: start: 20040924
  5. LEVAQUIN [Concomitant]
     Dates: start: 20040926, end: 20061001
  6. EPOGEN [Concomitant]
     Dates: start: 20040926

REACTIONS (4)
  - DEHYDRATION [None]
  - HYPOTENSION [None]
  - NEUTROPENIA [None]
  - SEPSIS [None]
